FAERS Safety Report 9752884 (Version 2)
Quarter: 2014Q1

REPORT INFORMATION
  Report Type: Spontaneous
  Country: TR (occurrence: TR)
  Receive Date: 20131213
  Receipt Date: 20140103
  Transmission Date: 20141002
  Serious: Yes (Hospitalization, Other)
  Sender: FDA-Public Use
  Company Number: TR-BAYER-2013-149113

PATIENT
  Age: 57 Year
  Sex: Male
  Weight: 123 kg

DRUGS (4)
  1. CORASPIN [Suspect]
     Dosage: 100 MG, QD
  2. CLOPIDOGREL [Concomitant]
     Indication: CORONARY ARTERY DISEASE
  3. ASPIRIN [Concomitant]
  4. ECOPIRIN [Concomitant]
     Indication: ATRIAL FIBRILLATION

REACTIONS (4)
  - Cardiac disorder [None]
  - Diabetes mellitus [None]
  - Tension [None]
  - Nephropathy [None]
